FAERS Safety Report 7510764-6 (Version None)
Quarter: 2011Q2

REPORT INFORMATION
  Report Type: 
  Country: None (occurrence: None)
  Receive Date: 20110530
  Receipt Date: 20110523
  Transmission Date: 20111010
  Serious: Yes (Death, Other)
  Sender: FDA-Public Use
  Company Number: PHEH2006US15185

PATIENT
  Sex: Female
  Weight: 76.644 kg

DRUGS (19)
  1. LISINOPRIL [Concomitant]
     Dosage: 10 MG, QD
  2. ADRIAMYCIN PFS [Suspect]
     Dosage: UNK
  3. TEGRETOL [Concomitant]
  4. FUROSEMIDE [Concomitant]
     Dosage: 20 MG, QD
  5. HYDROCODONE BITARTRATE [Concomitant]
  6. COREG [Concomitant]
     Dosage: 6.25 MG, QD
  7. EFFEXOR [Concomitant]
  8. AUGMENTIN '125' [Concomitant]
  9. CODEINE [Concomitant]
  10. ZOMETA [Suspect]
     Dosage: 4 MG, QMO
     Dates: start: 20060101, end: 20060731
  11. VIOXX [Concomitant]
     Dosage: 50 MG, QD
     Dates: start: 20040801
  12. ARIMIDEX [Concomitant]
     Indication: BREAST CANCER METASTATIC
     Dosage: UNK
     Dates: start: 20010101
  13. MEDROL [Concomitant]
  14. XELODA [Concomitant]
     Dosage: 500 MG, UNK
  15. VITAMIN B-12 [Concomitant]
     Dosage: 1000 MG, QMO
  16. NAVELBINE [Concomitant]
  17. ALBUTEROL SULFATE AUTOHALER [Concomitant]
  18. AVASTIN [Concomitant]
     Dosage: 900 MG, BIW
  19. XANAX [Concomitant]

REACTIONS (54)
  - ANXIETY [None]
  - FIBROMYALGIA [None]
  - METASTASES TO THE MEDIASTINUM [None]
  - HEADACHE [None]
  - JOINT SWELLING [None]
  - CARDIOMYOPATHY [None]
  - CARDIO-RESPIRATORY ARREST [None]
  - VASOGENIC CEREBRAL OEDEMA [None]
  - OSTEOARTHRITIS [None]
  - ASPIRATION PLEURAL CAVITY [None]
  - METASTASES TO LYMPH NODES [None]
  - CARDIOTOXICITY [None]
  - PNEUMONITIS [None]
  - PALPITATIONS [None]
  - CARBOHYDRATE ANTIGEN 27.29 INCREASED [None]
  - GENERAL PHYSICAL HEALTH DETERIORATION [None]
  - PLEURAL EFFUSION [None]
  - DISORIENTATION [None]
  - IMPAIRED HEALING [None]
  - ATELECTASIS [None]
  - LUNG CONSOLIDATION [None]
  - TOOTHACHE [None]
  - CARDIAC FAILURE CONGESTIVE [None]
  - NEURALGIA [None]
  - OMENTUM NEOPLASM [None]
  - HILAR LYMPHADENOPATHY [None]
  - METASTASES TO PERITONEUM [None]
  - DYSPHAGIA [None]
  - INTERVERTEBRAL DISC PROTRUSION [None]
  - PAIN [None]
  - DECREASED INTEREST [None]
  - OSTEITIS [None]
  - NAUSEA [None]
  - INSOMNIA [None]
  - DYSPNOEA [None]
  - SWELLING [None]
  - GAIT DISTURBANCE [None]
  - OSTEONECROSIS OF JAW [None]
  - DENTAL CARIES [None]
  - METASTASES TO CENTRAL NERVOUS SYSTEM [None]
  - EJECTION FRACTION DECREASED [None]
  - METASTASES TO LUNG [None]
  - ORAL MUCOSAL ERYTHEMA [None]
  - PERICARDIAL EFFUSION [None]
  - METASTASES TO HEART [None]
  - MALIGNANT PLEURAL EFFUSION [None]
  - DIZZINESS [None]
  - NEOPLASM MALIGNANT [None]
  - DEPRESSION [None]
  - BONE DISORDER [None]
  - LYMPHADENOPATHY [None]
  - SPLENIC CYST [None]
  - VOMITING [None]
  - NIGHT SWEATS [None]
